FAERS Safety Report 17415670 (Version 3)
Quarter: 2021Q4

REPORT INFORMATION
  Report Type: Report from Study
  Country: CA (occurrence: CA)
  Receive Date: 20200213
  Receipt Date: 20211206
  Transmission Date: 20220304
  Serious: Yes (Hospitalization)
  Sender: FDA-Public Use
  Company Number: CA-JNJFOC-20191130214

PATIENT
  Age: 38 Year
  Sex: Male
  Weight: 68.04 kg

DRUGS (4)
  1. STELARA [Suspect]
     Active Substance: USTEKINUMAB
     Indication: Crohn^s disease
     Route: 058
     Dates: start: 20180823, end: 20190925
  2. STELARA [Suspect]
     Active Substance: USTEKINUMAB
  3. PREDNISONE [Concomitant]
     Active Substance: PREDNISONE
     Dosage: ON A TAPERING DOSE , 50 MG X 10?DAYS , THEN 40 MG X 1 WEEK , THEN 30 MG X 1 WEEK , STOPPED DUE TO HO
     Route: 048
     Dates: start: 20190913, end: 20191005
  4. METHOTREXATE [Concomitant]
     Active Substance: METHOTREXATE
     Dosage: STRENGTH = 12.5 MG
     Route: 048
     Dates: start: 20180301, end: 20191005

REACTIONS (2)
  - Cytomegalovirus gastrointestinal infection [Recovering/Resolving]
  - Enteritis [Unknown]

NARRATIVE: CASE EVENT DATE: 20190901
